FAERS Safety Report 25073848 (Version 1)
Quarter: 2025Q1

REPORT INFORMATION
  Report Type: Other
  Country: CA (occurrence: CA)
  Receive Date: 20250313
  Receipt Date: 20250313
  Transmission Date: 20250408
  Serious: Yes (Other)
  Sender: APOTEX
  Company Number: CA-APOTEX-2025AP002973

PATIENT
  Age: 70 Year
  Sex: Male

DRUGS (1)
  1. ZOLEDRONIC ACID [Suspect]
     Active Substance: ZOLEDRONIC ACID
     Indication: Osteoporosis
     Route: 065

REACTIONS (4)
  - Femur fracture [Recovered/Resolved]
  - Hip fracture [Recovered/Resolved]
  - Incorrect route of product administration [Recovered/Resolved]
  - Spinal fracture [Recovered/Resolved]
